FAERS Safety Report 8348939-9 (Version None)
Quarter: 2012Q2

REPORT INFORMATION
  Report Type: 
  Country: None (occurrence: None)
  Receive Date: 20120508
  Receipt Date: 20120504
  Transmission Date: 20120825
  Serious: Yes (Death, Hospitalization)
  Sender: FDA-Public Use
  Company Number: 2012SP019021

PATIENT
  Age: 55 Year
  Sex: Male
  Weight: 90 kg

DRUGS (6)
  1. LEVEMIR [Concomitant]
  2. VICTRELIS [Suspect]
     Indication: HEPATITIS C
     Dosage: 800 MG;TID;PO
     Route: 048
     Dates: start: 20111220, end: 20120113
  3. APIDRA [Concomitant]
  4. REBETOL [Suspect]
     Indication: HEPATITIS C
     Dosage: 1200 MG;QD;PO
     Route: 048
     Dates: start: 20111112, end: 20120113
  5. VIRAFERONPEG [Suspect]
     Indication: HEPATITIS C
     Dosage: 150 MCG;QW;SC
     Route: 058
     Dates: start: 20111112, end: 20120113
  6. ALDACTONE [Concomitant]

REACTIONS (9)
  - DIALYSIS [None]
  - STAPHYLOCOCCAL BACTERAEMIA [None]
  - URINARY TRACT INFECTION [None]
  - RHABDOMYOLYSIS [None]
  - RENAL FAILURE [None]
  - SEPTIC SHOCK [None]
  - LOSS OF CONSCIOUSNESS [None]
  - FALL [None]
  - ENCEPHALOPATHY [None]
